FAERS Safety Report 6249126-0 (Version None)
Quarter: 2009Q2

REPORT INFORMATION
  Report Type: 
  Country: None (occurrence: None)
  Receive Date: 20090624
  Receipt Date: 20090624
  Transmission Date: 20091009
  Serious: Yes (Hospitalization, Other)
  Sender: FDA-Public Use
  Company Number: None

PATIENT
  Age: 65 Year
  Sex: Female
  Weight: 56.6996 kg

DRUGS (3)
  1. PLAVIX [Suspect]
     Indication: CEREBROVASCULAR ACCIDENT PROPHYLAXIS
     Dosage: 1XDAILY EVERY DAY PO
     Route: 048
     Dates: start: 20090208, end: 20090611
  2. PLAVIX [Suspect]
     Indication: ISCHAEMIC HEART DISEASE PROPHYLAXIS
     Dosage: 1XDAILY EVERY DAY PO
     Route: 048
     Dates: start: 20090208, end: 20090611
  3. ARICEPT [Suspect]
     Dosage: 1XDAILY EVERYDAY PO
     Route: 048
     Dates: start: 20090208, end: 20090622

REACTIONS (34)
  - ABDOMINAL DISCOMFORT [None]
  - ABDOMINAL PAIN UPPER [None]
  - ABNORMAL BEHAVIOUR [None]
  - ABNORMAL LOSS OF WEIGHT [None]
  - ANOREXIA [None]
  - ANXIETY [None]
  - ASTHENIA [None]
  - BLOOD GLUCOSE FLUCTUATION [None]
  - CEREBROVASCULAR ACCIDENT [None]
  - CHEST PAIN [None]
  - CHILLS [None]
  - CONFUSIONAL STATE [None]
  - DEPRESSED MOOD [None]
  - DEPRESSION [None]
  - DIZZINESS [None]
  - DYSPNOEA [None]
  - FATIGUE [None]
  - HEADACHE [None]
  - HOSTILITY [None]
  - HYPERHIDROSIS [None]
  - INSOMNIA [None]
  - IRRITABILITY [None]
  - MOOD ALTERED [None]
  - NAUSEA [None]
  - NERVOUSNESS [None]
  - PAIN [None]
  - PANIC ATTACK [None]
  - RESTLESSNESS [None]
  - SOMNOLENCE [None]
  - SPEECH DISORDER [None]
  - TREMOR [None]
  - VISION BLURRED [None]
  - VISUAL IMPAIRMENT [None]
  - VOMITING [None]
